FAERS Safety Report 8986807 (Version 1)
Quarter: 2012Q4

REPORT INFORMATION
  Report Type: 
  Country: US (occurrence: US)
  Receive Date: 20121227
  Receipt Date: 20121227
  Transmission Date: 20130627
  Serious: Yes (Other)
  Sender: FDA-Public Use
  Company Number: US-AMGEN-USASP2011010889

PATIENT
  Age: 45 Year
  Sex: Female
  Weight: 106.12 kg

DRUGS (8)
  1. ENBREL [Suspect]
     Indication: ANKYLOSING SPONDYLITIS
     Dosage: 50 mg, qwk
     Route: 058
     Dates: start: 200406, end: 201104
  2. MUCINEX [Concomitant]
     Dosage: UNK UNK, prn
  3. PRENATAL VITAMINS                  /01549301/ [Concomitant]
     Dosage: UNK
  4. RENATA [Concomitant]
     Dosage: UNK UNK, qd
     Route: 048
     Dates: start: 20110223
  5. NASONEX [Concomitant]
     Indication: COUGH
     Dosage: UNK UNK, qd
     Route: 045
     Dates: start: 20110420
  6. BENADRYL                           /00000402/ [Concomitant]
     Indication: COUGH
     Dosage: UNK
     Dates: start: 20120420
  7. ZANTAC [Concomitant]
     Indication: COUGH
     Dosage: UNK UNK, one time dose
     Dates: start: 20110420
  8. TYLENOL W/CODEINE [Concomitant]
     Dosage: UNK UNK, prn
     Dates: start: 20110615

REACTIONS (8)
  - Gestational diabetes [Unknown]
  - Gestational hypertension [Unknown]
  - Premature delivery [Unknown]
  - Caesarean section [Unknown]
  - Premature rupture of membranes [Unknown]
  - Cough [Recovered/Resolved]
  - VIIth nerve paralysis [Unknown]
  - Hypersensitivity [Unknown]
